FAERS Safety Report 4874597-1 (Version None)
Quarter: 2006Q1

REPORT INFORMATION
  Report Type: 
  Country: None (occurrence: None)
  Receive Date: 20060106
  Receipt Date: 20051227
  Transmission Date: 20060701
  Serious: Yes (Hospitalization)
  Sender: FDA-Public Use
  Company Number: US-MERCK-0512USA04101

PATIENT
  Age: 56 Year
  Sex: Female
  Weight: 73 kg

DRUGS (26)
  1. VIOXX [Suspect]
     Indication: ARTHRALGIA
     Route: 048
     Dates: start: 20000101, end: 20041001
  2. VIOXX [Suspect]
     Indication: PAIN
     Route: 048
     Dates: start: 20000101, end: 20041001
  3. LISINOPRIL [Concomitant]
     Route: 065
  4. TAZTIA XT [Concomitant]
     Route: 065
  5. LEVAQUIN [Concomitant]
     Route: 065
  6. VANTIN [Concomitant]
     Route: 065
  7. WARFARIN SODIUM [Concomitant]
     Route: 065
  8. ZITHROMAX [Concomitant]
     Route: 065
  9. HYDROCODONE BITARTRATE [Concomitant]
     Route: 065
  10. DEXTROAMPHETAMINE [Concomitant]
     Route: 065
  11. MIRTAZAPINE [Concomitant]
     Route: 065
  12. SEROQUEL [Concomitant]
     Route: 065
  13. AVINZA [Concomitant]
     Route: 065
  14. ENULOSE [Concomitant]
     Route: 065
  15. LOVENOX [Concomitant]
     Route: 065
  16. MEPHYTON [Concomitant]
     Route: 065
  17. CLONAZEPAM [Concomitant]
     Route: 065
  18. PREVACID [Concomitant]
     Route: 065
  19. GABAPENTIN [Concomitant]
     Route: 065
  20. ZOFRAN [Concomitant]
     Route: 065
  21. CYCLOBENZAPRINE HYDROCHLORIDE [Concomitant]
     Route: 065
  22. METRONIDAZOLE [Concomitant]
     Route: 065
  23. PROCHLORPERAZINE [Concomitant]
     Route: 065
  24. MORPHINE SULFATE [Concomitant]
     Route: 065
  25. BEXTRA [Suspect]
     Route: 065
  26. FUROSEMIDE [Concomitant]
     Route: 065

REACTIONS (7)
  - ARTHROPATHY [None]
  - BEHCET'S SYNDROME [None]
  - BREAST CANCER [None]
  - CARDIAC FAILURE [None]
  - DEPRESSION [None]
  - EMOTIONAL DISTRESS [None]
  - PNEUMONIA [None]
